FAERS Safety Report 22122125 (Version 1)
Quarter: 2023Q1

REPORT INFORMATION
  Report Type: Spontaneous
  Country: GR (occurrence: GR)
  Receive Date: 20230321
  Receipt Date: 20230321
  Transmission Date: 20230418
  Serious: Yes (Other)
  Sender: FDA-Public Use
  Company Number: GR-MYLANLABS-2023M1030153

PATIENT
  Age: 66 Year
  Sex: Male

DRUGS (1)
  1. TADALAFIL [Suspect]
     Active Substance: TADALAFIL
     Indication: Erectile dysfunction
     Dosage: 20 MILLIGRAM ONCE 24  HOURS AGO
     Route: 065

REACTIONS (6)
  - Optic ischaemic neuropathy [Recovered/Resolved with Sequelae]
  - Optic disc haemorrhage [Recovered/Resolved]
  - Vision blurred [Recovering/Resolving]
  - Pupillary reflex impaired [Not Recovered/Not Resolved]
  - Visual field defect [Not Recovered/Not Resolved]
  - Visual acuity reduced [Recovering/Resolving]
